FAERS Safety Report 18479915 (Version 1)
Quarter: 2020Q4

REPORT INFORMATION
  Report Type: Spontaneous
  Country: US (occurrence: US)
  Receive Date: 20201106
  Receipt Date: 20201106
  Transmission Date: 20210114
  Serious: No
  Sender: FDA-Public Use
  Company Number: None

PATIENT
  Age: 30 Month
  Sex: Male

DRUGS (1)
  1. TETRABENAZINE TAB 25MG [Suspect]
     Active Substance: TETRABENAZINE
     Dosage: 11/06/2020
     Route: 048
     Dates: start: 202011

REACTIONS (1)
  - Off label use [None]

NARRATIVE: CASE EVENT DATE: 20201105
